FAERS Safety Report 17186948 (Version 4)
Quarter: 2024Q2

REPORT INFORMATION
  Report Type: Spontaneous
  Country: HU (occurrence: HU)
  Receive Date: 20191220
  Receipt Date: 20240401
  Transmission Date: 20240716
  Serious: Yes (Hospitalization, Other)
  Sender: FDA-Public Use
  Company Number: HU-MYLANLABS-2019M1071137

PATIENT
  Age: 7 Year
  Sex: Female

DRUGS (4)
  1. LAMOTRIGINE [Suspect]
     Active Substance: LAMOTRIGINE
     Indication: Malaise
     Dosage: UNK
     Route: 065
  2. LAMOTRIGINE [Suspect]
     Active Substance: LAMOTRIGINE
     Indication: Epilepsy
  3. VALPROATE [Suspect]
     Active Substance: VALPROIC ACID
     Indication: Epilepsy
     Dosage: UNK
     Route: 065
  4. VALPROATE [Suspect]
     Active Substance: VALPROIC ACID
     Indication: Seizure

REACTIONS (10)
  - Tonic clonic movements [Recovered/Resolved]
  - Skin exfoliation [Recovered/Resolved]
  - Cyanosis [Recovered/Resolved]
  - Mucosal dryness [Recovered/Resolved]
  - Dermatitis bullous [Recovered/Resolved]
  - Drug hypersensitivity [Recovered/Resolved]
  - Sepsis [Recovered/Resolved]
  - Visual impairment [Recovered/Resolved]
  - Toxic epidermal necrolysis [Recovered/Resolved]
  - Skin lesion [Recovered/Resolved]
